FAERS Safety Report 25390457 (Version 1)
Quarter: 2025Q2

REPORT INFORMATION
  Report Type: Spontaneous
  Country: FR (occurrence: FR)
  Receive Date: 20250603
  Receipt Date: 20250603
  Transmission Date: 20250717
  Serious: Yes (Disabling, Other)
  Sender: PFIZER
  Company Number: FR-PFIZER INC-PV202500052208

PATIENT
  Age: 58 Year
  Sex: Female
  Weight: 77 kg

DRUGS (5)
  1. LORLATINIB [Suspect]
     Active Substance: LORLATINIB
     Indication: Anaplastic lymphoma kinase gene mutation
     Dosage: 100 MG, DAILY
     Route: 048
     Dates: start: 20241004
  2. LORLATINIB [Suspect]
     Active Substance: LORLATINIB
     Indication: Neoplasm malignant
  3. GABAPENTIN [Concomitant]
     Active Substance: GABAPENTIN
  4. GABAPENTIN [Concomitant]
     Active Substance: GABAPENTIN
     Dosage: 300 MG, 3X/DAY
     Dates: start: 202501
  5. ROSUVASTATIN [Concomitant]
     Active Substance: ROSUVASTATIN

REACTIONS (9)
  - Neuropathy peripheral [Recovering/Resolving]
  - Sensory loss [Not Recovered/Not Resolved]
  - Mental disorder [Recovering/Resolving]
  - Irritability [Recovering/Resolving]
  - Dizziness [Unknown]
  - Fatigue [Unknown]
  - Intracranial mass [Unknown]
  - Mobility decreased [Not Recovered/Not Resolved]
  - Incontinence [Not Recovered/Not Resolved]

NARRATIVE: CASE EVENT DATE: 20241201
